FAERS Safety Report 5305357-5 (Version None)
Quarter: 2007Q2

REPORT INFORMATION
  Report Type: 
  Country: None (occurrence: None)
  Receive Date: 20070424
  Receipt Date: 20070411
  Transmission Date: 20071010
  Serious: Yes (Other)
  Sender: FDA-Public Use
  Company Number: PHEH2007US05072

PATIENT
  Age: 69 Year
  Sex: Female

DRUGS (3)
  1. BYETTA [Concomitant]
     Dosage: UNK, UNK
  2. ZYRTEC [Concomitant]
     Dosage: UNK, UNK
  3. ZELNORM [Suspect]
     Indication: IRRITABLE BOWEL SYNDROME
     Dosage: 6 MG, BID
     Route: 048
     Dates: start: 20040101, end: 20070331

REACTIONS (6)
  - ANGIOEDEMA [None]
  - ERYTHEMA [None]
  - ERYTHEMA OF EYELID [None]
  - EYELID OEDEMA [None]
  - HEADACHE [None]
  - SWELLING FACE [None]
